FAERS Safety Report 24206922 (Version 1)
Quarter: 2024Q3

REPORT INFORMATION
  Report Type: Spontaneous
  Country: BR (occurrence: BR)
  Receive Date: 20240813
  Receipt Date: 20240813
  Transmission Date: 20241016
  Serious: Yes (Other)
  Sender: JOHNSON AND JOHNSON
  Company Number: BR-JNJFOC-20240820867

PATIENT
  Age: 32 Year
  Sex: Male

DRUGS (42)
  1. SPRAVATO [Suspect]
     Active Substance: ESKETAMINE
     Indication: Depression
     Dosage: WEEK 1
     Dates: start: 20220531
  2. SPRAVATO [Suspect]
     Active Substance: ESKETAMINE
     Indication: Suicidal ideation
     Dosage: WEEK 2
     Dates: start: 20220602
  3. SPRAVATO [Suspect]
     Active Substance: ESKETAMINE
     Dosage: WEEK 3
     Dates: start: 20220607
  4. SPRAVATO [Suspect]
     Active Substance: ESKETAMINE
     Dosage: WEEK 4
     Dates: start: 20220609
  5. SPRAVATO [Suspect]
     Active Substance: ESKETAMINE
     Dosage: 1ST WEEK OF SPRAVATO
     Dates: start: 20220614
  6. SPRAVATO [Suspect]
     Active Substance: ESKETAMINE
     Dosage: END OF 1ST MONTH OF TREATMENT
     Dates: start: 202207
  7. SPRAVATO [Suspect]
     Active Substance: ESKETAMINE
     Dosage: 2ND MONTH OF TREATMENT
     Dates: start: 202208
  8. SPRAVATO [Suspect]
     Active Substance: ESKETAMINE
     Dosage: 3RD MONTH OF TREATMENT
     Dates: start: 202209
  9. SPRAVATO [Suspect]
     Active Substance: ESKETAMINE
     Dosage: 4TH MONTH OF TREATMENT
     Dates: start: 202210
  10. SPRAVATO [Suspect]
     Active Substance: ESKETAMINE
     Dosage: 5TH MONTH OF TREATMENT
     Dates: start: 202211
  11. SPRAVATO [Suspect]
     Active Substance: ESKETAMINE
     Dosage: 7TH MONTH OF TREATMENT
     Dates: start: 202302
  12. SPRAVATO [Suspect]
     Active Substance: ESKETAMINE
     Dosage: 9TH MONTH OF TREATMENT
     Dates: start: 202304
  13. SPRAVATO [Suspect]
     Active Substance: ESKETAMINE
     Dosage: 12TH MONTH OF TREATMENT
     Dates: start: 202307
  14. SPRAVATO [Suspect]
     Active Substance: ESKETAMINE
     Dosage: 13TH MONTH OF TREATMENT
     Dates: start: 202309
  15. SPRAVATO [Suspect]
     Active Substance: ESKETAMINE
     Dosage: 15TH MONTH OF TREATMENT
     Dates: start: 202311
  16. SPRAVATO [Suspect]
     Active Substance: ESKETAMINE
     Dosage: 16TH MONTH OF TREATMENT
     Dates: start: 202312
  17. SPRAVATO [Suspect]
     Active Substance: ESKETAMINE
     Dosage: 18TH MONTH OF TREATMENT
     Dates: start: 202402
  18. SPRAVATO [Suspect]
     Active Substance: ESKETAMINE
     Dosage: LAST SESSION
     Dates: start: 202404, end: 202404
  19. CLONAZEPAM [Suspect]
     Active Substance: CLONAZEPAM
     Indication: Product used for unknown indication
     Route: 065
  20. LAMOTRIGINE [Concomitant]
     Active Substance: LAMOTRIGINE
     Indication: Social anxiety disorder
     Route: 065
  21. LAMOTRIGINE [Concomitant]
     Active Substance: LAMOTRIGINE
     Indication: Depression
     Dosage: 200 MG/D
     Route: 065
  22. LAMOTRIGINE [Concomitant]
     Active Substance: LAMOTRIGINE
     Dosage: 100 MG/D
     Route: 065
     Dates: start: 202209
  23. LAMOTRIGINE [Concomitant]
     Active Substance: LAMOTRIGINE
     Dosage: TAPERING
     Route: 065
     Dates: start: 202210, end: 202211
  24. FLUVOXAMINE [Concomitant]
     Active Substance: FLUVOXAMINE
     Indication: Social anxiety disorder
     Route: 065
     Dates: end: 202307
  25. FLUVOXAMINE [Concomitant]
     Active Substance: FLUVOXAMINE
     Indication: Depression
  26. ZOLPIDEM [Concomitant]
     Active Substance: ZOLPIDEM TARTRATE
     Indication: Social anxiety disorder
     Dosage: 10 MG/D
     Route: 065
  27. ZOLPIDEM [Concomitant]
     Active Substance: ZOLPIDEM TARTRATE
     Indication: Depression
  28. LITHIUM [Concomitant]
     Active Substance: LITHIUM
     Indication: Product used for unknown indication
     Route: 065
  29. LITHIUM [Concomitant]
     Active Substance: LITHIUM
     Dosage: 450MG/D
     Route: 065
     Dates: start: 202209, end: 202311
  30. BREXPIPRAZOLE [Concomitant]
     Active Substance: BREXPIPRAZOLE
     Indication: Product used for unknown indication
     Dosage: 5 MG/D
     Route: 065
     Dates: start: 202209
  31. BREXPIPRAZOLE [Concomitant]
     Active Substance: BREXPIPRAZOLE
     Dosage: 10 MG/D
     Route: 065
     Dates: start: 202210
  32. LITHIUM CARBONATE [Concomitant]
     Active Substance: LITHIUM CARBONATE
     Indication: Product used for unknown indication
     Dosage: 450MG/D
     Route: 065
     Dates: start: 202210
  33. LITHIUM CARBONATE [Concomitant]
     Active Substance: LITHIUM CARBONATE
     Dosage: 450MG/D
     Route: 065
     Dates: start: 202307
  34. VORTIOXETINE [Concomitant]
     Active Substance: VORTIOXETINE HYDROBROMIDE
     Indication: Product used for unknown indication
     Dosage: 10 MG/D
     Route: 065
     Dates: start: 202307
  35. VORTIOXETINE [Concomitant]
     Active Substance: VORTIOXETINE HYDROBROMIDE
     Dosage: 15 MG/D
     Route: 065
     Dates: start: 202311
  36. VORTIOXETINE [Concomitant]
     Active Substance: VORTIOXETINE HYDROBROMIDE
     Dosage: 15 MG/D
     Route: 065
     Dates: start: 202402
  37. VORTIOXETINE [Concomitant]
     Active Substance: VORTIOXETINE HYDROBROMIDE
     Dosage: 15 MG/D
     Route: 065
     Dates: start: 202404
  38. CLOMIPRAMINE [Concomitant]
     Active Substance: CLOMIPRAMINE
     Indication: Product used for unknown indication
     Dosage: 25 MG/D
     Route: 065
     Dates: start: 202311
  39. CLOMIPRAMINE [Concomitant]
     Active Substance: CLOMIPRAMINE
     Dosage: 25 MG/D
     Route: 065
     Dates: start: 202402
  40. CLOMIPRAMINE [Concomitant]
     Active Substance: CLOMIPRAMINE
     Dosage: 25 MG/D
     Route: 065
     Dates: start: 202404
  41. TRAZODONE [Concomitant]
     Active Substance: TRAZODONE HYDROCHLORIDE
     Indication: Product used for unknown indication
     Dosage: 50MG/D
     Route: 065
     Dates: start: 202402
  42. TRAZODONE [Concomitant]
     Active Substance: TRAZODONE HYDROCHLORIDE
     Dosage: 50MG/D
     Route: 065
     Dates: start: 202404

REACTIONS (7)
  - Drug abuse [Unknown]
  - Somnolence [Unknown]
  - Disturbance in attention [Unknown]
  - Anxiety [Unknown]
  - Insomnia [Unknown]
  - Dissociation [Unknown]
  - Product dose omission issue [Unknown]

NARRATIVE: CASE EVENT DATE: 20220531
